FAERS Safety Report 8121747-X (Version None)
Quarter: 2012Q1

REPORT INFORMATION
  Report Type: 
  Country: None (occurrence: None)
  Receive Date: 20120208
  Receipt Date: 20120131
  Transmission Date: 20120608
  Serious: No
  Sender: FDA-Public Use
  Company Number: US-B.I. PHARMACEUTICALS,INC./RIDGEFIELD-2011-BP-28173BP

PATIENT
  Sex: Male
  Weight: 120.2 kg

DRUGS (5)
  1. PACERONE [Concomitant]
     Indication: ARRHYTHMIA
  2. ASPIRIN [Concomitant]
     Indication: CORONARY ARTERY DISEASE
  3. PRADAXA [Suspect]
     Indication: ATRIAL FIBRILLATION
     Dosage: 300 MG
     Route: 048
     Dates: start: 20110126, end: 20110131
  4. TOPROL-XL [Concomitant]
     Indication: ARRHYTHMIA
  5. COZAAR [Concomitant]
     Indication: HYPERTENSION

REACTIONS (2)
  - RASH GENERALISED [None]
  - SCAR [None]
